FAERS Safety Report 9805923 (Version 2)
Quarter: 2014Q1

REPORT INFORMATION
  Report Type: Spontaneous
  Country: GB (occurrence: GB)
  Receive Date: 20140109
  Receipt Date: 20140109
  Transmission Date: 20141002
  Serious: Yes (Hospitalization, Other)
  Sender: FDA-Public Use
  Company Number: PHFR2013GB006575

PATIENT
  Age: 73 Year
  Sex: Male

DRUGS (11)
  1. CLOZARIL [Suspect]
     Indication: SCHIZOPHRENIA
     Dosage: 400 MG, UNK
     Route: 048
     Dates: start: 20041104
  2. SENNA [Concomitant]
     Indication: CONSTIPATION
     Dosage: 15 MG, UNK
     Route: 048
     Dates: start: 20131206
  3. OLANZAPINE [Concomitant]
     Indication: SCHIZOPHRENIA
     Dosage: 20 MG,
     Route: 048
     Dates: start: 2003
  4. PROPRANOLOL [Concomitant]
     Indication: AKATHISIA
     Dosage: 30 MG,
     Route: 048
     Dates: start: 2004
  5. CYANOCOBALAMIN [Concomitant]
     Indication: VITAMIN B12 DEFICIENCY
     Dosage: 150 MG,
  6. LANSOPRAZOLE [Concomitant]
     Indication: DYSPEPSIA
     Dosage: 30 MG,
     Dates: start: 2000
  7. BISOPROLOL [Concomitant]
     Indication: HYPERTENSION
     Dosage: 1.25 MG,
     Route: 048
     Dates: start: 2004
  8. CALCIUM CARBONATE W/COLECALCIFEROL [Concomitant]
     Indication: VITAMIN D DEFICIENCY
     Dosage: UNK UKN, BID
     Route: 048
  9. CALCIUM CARBONATE W/COLECALCIFEROL [Concomitant]
     Indication: CALCIUM DEFICIENCY
  10. CO CODAMOL [Concomitant]
     Indication: ARTHRITIS
     Dosage: UNK UKN, QD
  11. ASPIRIN [Concomitant]
     Indication: PROPHYLAXIS
     Dosage: 75 MG, UNK
     Route: 048

REACTIONS (10)
  - Unresponsive to stimuli [Unknown]
  - Weight decreased [Recovering/Resolving]
  - Somnolence [Unknown]
  - Pneumonia aspiration [Recovering/Resolving]
  - Vomiting [Recovering/Resolving]
  - Hypertension [Not Recovered/Not Resolved]
  - Malaise [Unknown]
  - Abdominal discomfort [Not Recovered/Not Resolved]
  - Diarrhoea [Not Recovered/Not Resolved]
  - Constipation [Not Recovered/Not Resolved]
